FAERS Safety Report 12241029 (Version 1)
Quarter: 2016Q2

REPORT INFORMATION
  Report Type: Spontaneous
  Country: GB (occurrence: GB)
  Receive Date: 20160406
  Receipt Date: 20160406
  Transmission Date: 20160815
  Serious: Yes (Hospitalization)
  Sender: FDA-Public Use
  Company Number: GB-ACCORD-039411

PATIENT
  Age: 87 Year
  Sex: Female

DRUGS (2)
  1. AMITRIPTYLINE [Suspect]
     Active Substance: AMITRIPTYLINE
     Indication: NEURALGIA
     Dosage: AT NIGHT
     Route: 048
     Dates: end: 20160316
  2. LOSARTAN. [Suspect]
     Active Substance: LOSARTAN
     Indication: HYPERTENSION
     Dosage: IN THE MORNING
     Route: 048
     Dates: end: 20160316

REACTIONS (3)
  - Orthostatic hypotension [Not Recovered/Not Resolved]
  - Off label use [Unknown]
  - Hyponatraemia [Not Recovered/Not Resolved]

NARRATIVE: CASE EVENT DATE: 20160316
